FAERS Safety Report 23764192 (Version 2)
Quarter: 2024Q2

REPORT INFORMATION
  Report Type: Report from Study
  Country: CA (occurrence: CA)
  Receive Date: 20240420
  Receipt Date: 20240421
  Transmission Date: 20240716
  Serious: Yes (Hospitalization)
  Sender: FDA-Public Use
  Company Number: CA-ABBVIE-5724286

PATIENT
  Sex: Male

DRUGS (1)
  1. SKYRIZI [Suspect]
     Active Substance: RISANKIZUMAB-RZAA
     Indication: Psoriasis
     Route: 058
     Dates: start: 20221104

REACTIONS (8)
  - Loss of consciousness [Unknown]
  - Pyrexia [Unknown]
  - Hallucination [Unknown]
  - Psoriasis [Unknown]
  - Stress [Unknown]
  - Road traffic accident [Unknown]
  - Joint injury [Unknown]
  - Joint swelling [Unknown]

NARRATIVE: CASE EVENT DATE: 20231001
